FAERS Safety Report 17678781 (Version 1)
Quarter: 2020Q2

REPORT INFORMATION
  Report Type: Report from Study
  Country: CA (occurrence: CA)
  Receive Date: 20200417
  Receipt Date: 20200417
  Transmission Date: 20200714
  Serious: Yes (Disabling)
  Sender: FDA-Public Use
  Company Number: CA-AMGEN-CANSL2020055666

PATIENT
  Age: 62 Year
  Sex: Female
  Weight: 73.5 kg

DRUGS (6)
  1. ADVIL [IBUPROFEN] [Concomitant]
     Active Substance: IBUPROFEN
     Dosage: UNK UNK, AS NECESSARY
  2. PROLIA [Suspect]
     Active Substance: DENOSUMAB
     Indication: OSTEOPOROSIS POSTMENOPAUSAL
     Dosage: 60 MILLIGRAM PER MILLILITRE, Q6MO
     Route: 058
     Dates: start: 20190417
  3. VIT D [Concomitant]
     Active Substance: VITAMIN D NOS
  4. VITAMIN K [MENADIONE] [Concomitant]
     Active Substance: MENADIONE
  5. VITAMIN C [Concomitant]
     Active Substance: ASCORBIC ACID
  6. CALCIUM [Concomitant]
     Active Substance: CALCIUM

REACTIONS (7)
  - Rash papular [Not Recovered/Not Resolved]
  - Rash erythematous [Not Recovered/Not Resolved]
  - Wrong technique in product usage process [Unknown]
  - Rash [Not Recovered/Not Resolved]
  - Skin texture abnormal [Recovering/Resolving]
  - Rash pruritic [Not Recovered/Not Resolved]
  - Formication [Recovering/Resolving]

NARRATIVE: CASE EVENT DATE: 201910
